FAERS Safety Report 11691583 (Version 2)
Quarter: 2015Q4

REPORT INFORMATION
  Report Type: Report from Study
  Country: US (occurrence: US)
  Receive Date: 20151102
  Receipt Date: 20151110
  Transmission Date: 20160304
  Serious: Yes (Hospitalization)
  Sender: FDA-Public Use
  Company Number: US-SEATTLE GENETICS-2015SGN01542

PATIENT

DRUGS (17)
  1. BRENTUXIMAB VEDOTIN [Suspect]
     Active Substance: BRENTUXIMAB VEDOTIN
     Indication: DIFFUSE LARGE B-CELL LYMPHOMA
     Dosage: 1.2 MG/KG, Q21D
     Route: 042
     Dates: start: 20150810, end: 20150909
  2. CARVEDILOL. [Concomitant]
     Active Substance: CARVEDILOL
  3. WARFARIN [Concomitant]
     Active Substance: WARFARIN
  4. ACYCLOVIR                          /00587301/ [Concomitant]
     Active Substance: ACYCLOVIR
  5. ASPIRIN                            /00002701/ [Concomitant]
     Active Substance: ASPIRIN
  6. METOLAZONE. [Concomitant]
     Active Substance: METOLAZONE
  7. PANTOPRAZOLE [Concomitant]
     Active Substance: PANTOPRAZOLE SODIUM
  8. BUMETANIDE. [Concomitant]
     Active Substance: BUMETANIDE
  9. DEXAMETHASONE. [Concomitant]
     Active Substance: DEXAMETHASONE
  10. LENALIDOMIDE [Suspect]
     Active Substance: LENALIDOMIDE
     Indication: DIFFUSE LARGE B-CELL LYMPHOMA
     Dosage: 15 MG, QD
     Route: 048
     Dates: start: 20150810, end: 20150922
  11. ISOSORBIDE MONONITRATE. [Concomitant]
     Active Substance: ISOSORBIDE MONONITRATE
  12. OXYCODONE HYDROCHLORIDE AND ACETAMINOPHEN [Concomitant]
     Active Substance: ACETAMINOPHEN\OXYCODONE HYDROCHLORIDE
  13. POTASSIUM CHLORIDE. [Concomitant]
     Active Substance: POTASSIUM CHLORIDE
  14. VITAMIN D3 [Concomitant]
     Active Substance: CHOLECALCIFEROL
  15. CHOLECALCIFEROL [Concomitant]
     Active Substance: CHOLECALCIFEROL
  16. REVLIMID [Concomitant]
     Active Substance: LENALIDOMIDE
  17. ZOLPIDEM [Concomitant]
     Active Substance: ZOLPIDEM\ZOLPIDEM TARTRATE

REACTIONS (7)
  - Acute kidney injury [Not Recovered/Not Resolved]
  - Device related infection [None]
  - Enterococcal bacteraemia [Not Recovered/Not Resolved]
  - Lymphadenopathy [None]
  - Peripheral swelling [Not Recovered/Not Resolved]
  - Hypokalaemia [Recovered/Resolved]
  - Hydronephrosis [None]

NARRATIVE: CASE EVENT DATE: 20150923
